FAERS Safety Report 4748633-7 (Version None)
Quarter: 2005Q3

REPORT INFORMATION
  Report Type: 
  Country: None (occurrence: None)
  Receive Date: 20050817
  Receipt Date: 20050805
  Transmission Date: 20060218
  Serious: Yes (Other)
  Sender: FDA-Public Use
  Company Number: KII-2005-0017913

PATIENT
  Age: 73 Year
  Sex: Female

DRUGS (2)
  1. HYDROMORPHONE HCL [Suspect]
  2. OTHER HYPNOTICS AND SEDATIVIES (OTHER HYPNOTICS AND SEDATIVES) [Suspect]
     Indication: DRUG USE FOR UNKNOWN INDICATION
     Dosage: ORAL
     Route: 048
     Dates: start: 20050714

REACTIONS (3)
  - BLOOD PRESSURE DIASTOLIC DECREASED [None]
  - COMA [None]
  - GAIT DISTURBANCE [None]
